FAERS Safety Report 5224079-2 (Version None)
Quarter: 2007Q1

REPORT INFORMATION
  Report Type: 
  Country: None (occurrence: None)
  Receive Date: 20070130
  Receipt Date: 20070117
  Transmission Date: 20070707
  Serious: Yes (Other)
  Sender: FDA-Public Use
  Company Number: PHEH2006US14859

PATIENT
  Age: 85 Year
  Sex: Male

DRUGS (5)
  1. GLEEVEC [Suspect]
     Indication: CHRONIC MYELOID LEUKAEMIA
     Dosage: 400 MG, QD
     Route: 048
     Dates: start: 20060718, end: 20060815
  2. PLAVIX [Concomitant]
     Indication: TRANSIENT ISCHAEMIC ATTACK
     Dosage: 75 MG, QD
     Route: 048
     Dates: end: 20061114
  3. METOPROLOL TARTRATE [Concomitant]
     Indication: HYPERTENSION
     Dosage: 100 MG, BID
     Route: 048
  4. HYDROCHLOROTHIAZIDE [Concomitant]
     Indication: HYPERTENSION
     Dosage: 25 MG, QD
     Route: 048
  5. OMEPRAZOLE [Concomitant]
     Indication: GASTRITIS
     Dosage: 20 MG, QD
     Route: 048

REACTIONS (2)
  - ATRIAL FIBRILLATION [None]
  - DRUG INEFFECTIVE [None]
